FAERS Safety Report 6841879-3 (Version None)
Quarter: 2010Q3

REPORT INFORMATION
  Report Type: 
  Country: None (occurrence: None)
  Receive Date: 20100714
  Receipt Date: 20070716
  Transmission Date: 20110219
  Serious: No
  Sender: FDA-Public Use
  Company Number: US-PFIZER INC-2007058871

PATIENT
  Sex: Female
  Weight: 63.5 kg

DRUGS (7)
  1. CHANTIX [Suspect]
     Indication: SMOKING CESSATION THERAPY
     Route: 048
     Dates: start: 20070705
  2. NEXIUM [Concomitant]
  3. ATENOLOL [Concomitant]
  4. TRIAMTERENE [Concomitant]
  5. SIMVASTATIN [Concomitant]
  6. GEMFIBROZIL [Concomitant]
  7. ALL OTHER THERAPEUTIC PRODUCTS [Concomitant]

REACTIONS (2)
  - NAUSEA [None]
  - VOMITING [None]
